FAERS Safety Report 12737331 (Version 1)
Quarter: 2016Q3

REPORT INFORMATION
  Report Type: Report from Study
  Country: US (occurrence: US)
  Receive Date: 20160912
  Receipt Date: 20160912
  Transmission Date: 20161109
  Serious: Yes (Hospitalization, Other)
  Sender: FDA-Public Use
  Company Number: US-ABBVIE-16K-163-1720681-00

PATIENT
  Sex: Male

DRUGS (1)
  1. HUMIRA [Suspect]
     Active Substance: ADALIMUMAB
     Indication: JUVENILE IDIOPATHIC ARTHRITIS
     Route: 058
     Dates: start: 20160706

REACTIONS (4)
  - Abnormal behaviour [Recovering/Resolving]
  - Blood cholesterol increased [Unknown]
  - Mental disorder [Recovering/Resolving]
  - Skin odour abnormal [Unknown]

NARRATIVE: CASE EVENT DATE: 2016
